FAERS Safety Report 4870087-0 (Version None)
Quarter: 2005Q4

REPORT INFORMATION
  Report Type: 
  Country: None (occurrence: None)
  Receive Date: 20051227
  Receipt Date: 20051208
  Transmission Date: 20060501
  Serious: Yes (Other)
  Sender: FDA-Public Use
  Company Number: 2005-135502-NL

PATIENT
  Age: 25 Year
  Sex: Female
  Weight: 103.4 kg

DRUGS (1)
  1. NUVARING [Suspect]

REACTIONS (4)
  - CERVICITIS [None]
  - CERVIX DISORDER [None]
  - COITAL BLEEDING [None]
  - SENSATION OF PRESSURE [None]
